FAERS Safety Report 8475760-3 (Version None)
Quarter: 2012Q2

REPORT INFORMATION
  Report Type: 
  Country: None (occurrence: None)
  Receive Date: 20120628
  Receipt Date: 20120621
  Transmission Date: 20120825
  Serious: Yes (Other)
  Sender: FDA-Public Use
  Company Number: US-ASTRAZENECA-2010SE20385

PATIENT
  Age: 87 Year
  Sex: Female

DRUGS (2)
  1. ADVAIR DISKUS 100/50 [Concomitant]
  2. NEXIUM [Suspect]
     Indication: GASTROOESOPHAGEAL REFLUX DISEASE
     Route: 048

REACTIONS (16)
  - EXOSTOSIS [None]
  - NERVE COMPRESSION [None]
  - VOMITING [None]
  - GASTROOESOPHAGEAL REFLUX DISEASE [None]
  - MALAISE [None]
  - HYPOACUSIS [None]
  - SLEEP DISORDER DUE TO GENERAL MEDICAL CONDITION, INSOMNIA TYPE [None]
  - NAUSEA [None]
  - ABDOMINAL DISCOMFORT [None]
  - INTENTIONAL DRUG MISUSE [None]
  - APHAGIA [None]
  - FEELING ABNORMAL [None]
  - TYMPANIC MEMBRANE PERFORATION [None]
  - ASTHMA [None]
  - FRACTURE [None]
  - DRUG DOSE OMISSION [None]
